FAERS Safety Report 12808821 (Version 1)
Quarter: 2016Q4

REPORT INFORMATION
  Report Type: Spontaneous
  Country: US (occurrence: US)
  Receive Date: 20161004
  Receipt Date: 20161004
  Transmission Date: 20170207
  Serious: Yes (Life-Threatening, Hospitalization, Other)
  Sender: FDA-Public Use
  Company Number: US-BAYER-2016-191223

PATIENT
  Age: 56 Year
  Sex: Female

DRUGS (1)
  1. GADAVIST [Suspect]
     Active Substance: GADOBUTROL
     Indication: NUCLEAR MAGNETIC RESONANCE IMAGING BRAIN
     Dosage: UNK, ONCE
     Dates: start: 20160527, end: 20160527

REACTIONS (4)
  - Cardiac arrest [Unknown]
  - Sternal fracture [Unknown]
  - Anaphylactic shock [Unknown]
  - Rib fracture [Unknown]

NARRATIVE: CASE EVENT DATE: 20160527
